FAERS Safety Report 13279033 (Version 2)
Quarter: 2018Q1

REPORT INFORMATION
  Report Type: Spontaneous
  Country: US (occurrence: US)
  Receive Date: 20170228
  Receipt Date: 20180131
  Transmission Date: 20180508
  Serious: No
  Sender: FDA-Public Use
  Company Number: US-ALLERGAN-1700926US

PATIENT
  Sex: Female
  Weight: 86.98 kg

DRUGS (1)
  1. SAVELLA [Suspect]
     Active Substance: MILNACIPRAN HYDROCHLORIDE
     Indication: PRODUCT USED FOR UNKNOWN INDICATION

REACTIONS (1)
  - Drug hypersensitivity [Unknown]
